FAERS Safety Report 20662534 (Version 1)
Quarter: 2022Q2

REPORT INFORMATION
  Report Type: Spontaneous
  Country: IT (occurrence: IT)
  Receive Date: 20220401
  Receipt Date: 20220401
  Transmission Date: 20220721
  Serious: Yes (Hospitalization)
  Sender: FDA-Public Use
  Company Number: IT-MINISAL02-854816

PATIENT
  Age: 35 Year
  Sex: Male

DRUGS (1)
  1. ACETAMINOPHEN [Suspect]
     Active Substance: ACETAMINOPHEN
     Indication: Headache
     Dosage: 1 DOSAGE FORM (TOTAL)
     Route: 048
     Dates: start: 20211224, end: 20211224

REACTIONS (3)
  - Pruritus [Recovered/Resolved]
  - Lip swelling [Recovered/Resolved]
  - Flushing [Recovered/Resolved]

NARRATIVE: CASE EVENT DATE: 20211225
